FAERS Safety Report 21456478 (Version 2)
Quarter: 2022Q4

REPORT INFORMATION
  Report Type: Spontaneous
  Country: AR (occurrence: AR)
  Receive Date: 20221014
  Receipt Date: 20221119
  Transmission Date: 20230113
  Serious: Yes (Life-Threatening, Other)
  Sender: FDA-Public Use
  Company Number: AR-NOVARTISPH-NVSC2022AR231631

PATIENT
  Sex: Female

DRUGS (9)
  1. DIOVAN [Suspect]
     Active Substance: VALSARTAN
     Indication: Hypertension
     Dosage: 1 DOSAGE FORM, QD, START DATE: SINCE 18 YEARS AGO. STOP DATE: 3 YEARS AGO.
     Route: 065
  2. METFORMIN [Suspect]
     Active Substance: METFORMIN HYDROCHLORIDE
     Indication: Type 2 diabetes mellitus
     Dosage: UNK
     Route: 065
  3. NOSTER [Concomitant]
     Indication: Product used for unknown indication
     Dosage: UNK
     Route: 065
  4. ATENOLOL [Concomitant]
     Active Substance: ATENOLOL
     Indication: Product used for unknown indication
     Dosage: UNK
     Route: 065
  5. LEVOTHYROXINE [Concomitant]
     Active Substance: LEVOTHYROXINE
     Indication: Product used for unknown indication
     Dosage: UNK, SINCE SHE WAS 20 YEARS OLD
     Route: 065
  6. AMLODIPINE [Concomitant]
     Active Substance: AMLODIPINE BESYLATE
     Indication: Product used for unknown indication
     Dosage: UNK, 5 (UNIT NOT REPORTED)
     Route: 065
  7. SIMULTAN [Concomitant]
     Indication: Product used for unknown indication
     Dosage: 160 MG
     Route: 065
  8. HYDROCHLOROTHIAZIDE [Concomitant]
     Active Substance: HYDROCHLOROTHIAZIDE
     Indication: Product used for unknown indication
     Dosage: 12.5 MG
     Route: 065
  9. BUDESONIDE [Concomitant]
     Active Substance: BUDESONIDE
     Indication: Product used for unknown indication
     Dosage: UNK, PUFF
     Route: 065

REACTIONS (15)
  - Hypertension [Recovering/Resolving]
  - Type 2 diabetes mellitus [Recovering/Resolving]
  - Visual impairment [Unknown]
  - Glaucoma [Unknown]
  - Ligament rupture [Unknown]
  - Road traffic accident [Unknown]
  - Head injury [Unknown]
  - Memory impairment [Unknown]
  - Hyperglycaemia [Unknown]
  - Blood calcium increased [Recovering/Resolving]
  - Fluid retention [Recovering/Resolving]
  - Paranasal cyst [Recovered/Resolved]
  - Oral pain [Unknown]
  - Lip disorder [Unknown]
  - Drug intolerance [Unknown]
